FAERS Safety Report 8105089 (Version 3)
Quarter: 2012Q4

REPORT INFORMATION
  Report Type: 
  Country: US (occurrence: US)
  Receive Date: 20110824
  Receipt Date: 20121102
  Transmission Date: 20130627
  Serious: Yes (Other)
  Sender: FDA-Public Use
  Company Number: US-ASTRAZENECA-2011SE49535

PATIENT
  Age: 65 Year
  Sex: Male

DRUGS (3)
  1. NEXIUM [Suspect]
     Route: 048
  2. MOTRIN [Suspect]
     Route: 065
  3. PAIN PILLS [Suspect]
     Route: 065

REACTIONS (3)
  - Gastric haemorrhage [Unknown]
  - Arthralgia [Unknown]
  - Drug dose omission [Unknown]
